FAERS Safety Report 5564196-0 (Version None)
Quarter: 2007Q4

REPORT INFORMATION
  Report Type: 
  Country: None (occurrence: None)
  Receive Date: 20071212
  Receipt Date: 20071129
  Transmission Date: 20080405
  Serious: Yes (Other)
  Sender: FDA-Public Use
  Company Number: 230770J07USA

PATIENT
  Age: 33 Year
  Sex: Female
  Weight: 97.5234 kg

DRUGS (3)
  1. REBIF [Suspect]
     Dosage: 44 MCG, 3 IN 1 WEEKS, SUBCUTANEOUS
     Route: 058
  2. ZANAFLEX [Concomitant]
  3. VICODIN [Concomitant]

REACTIONS (1)
  - GRAND MAL CONVULSION [None]
